FAERS Safety Report 7127936-5 (Version None)
Quarter: 2010Q4

REPORT INFORMATION
  Report Type: 
  Country: None (occurrence: None)
  Receive Date: 20101130
  Receipt Date: 20101115
  Transmission Date: 20110411
  Serious: Yes (Death, Hospitalization, Other)
  Sender: FDA-Public Use
  Company Number: US-RANBAXY-2010RR-39753

PATIENT

DRUGS (1)
  1. ACETAMINOPHEN [Suspect]

REACTIONS (1)
  - OVERDOSE [None]
